FAERS Safety Report 20167509 (Version 2)
Quarter: 2021Q4

REPORT INFORMATION
  Report Type: Report from Study
  Country: CO (occurrence: CO)
  Receive Date: 20211209
  Receipt Date: 20211210
  Transmission Date: 20220304
  Serious: Yes (Other)
  Sender: FDA-Public Use
  Company Number: CO-ABBVIE-21K-036-4191788-00

PATIENT
  Age: 55 Year
  Sex: Female
  Weight: 58 kg

DRUGS (3)
  1. VENCLEXTA [Suspect]
     Active Substance: VENETOCLAX
     Indication: Chronic lymphocytic leukaemia
     Route: 048
     Dates: start: 20210622, end: 20210911
  2. VENCLEXTA [Suspect]
     Active Substance: VENETOCLAX
     Route: 048
     Dates: start: 20210912, end: 20210912
  3. ALLOPURINOL [Concomitant]
     Active Substance: ALLOPURINOL
     Indication: Renal disorder
     Route: 048
     Dates: start: 202111

REACTIONS (8)
  - Asphyxia [Not Recovered/Not Resolved]
  - Malaise [Not Recovered/Not Resolved]
  - Nasal congestion [Not Recovered/Not Resolved]
  - Dyspnoea [Not Recovered/Not Resolved]
  - Renal disorder [Not Recovered/Not Resolved]
  - Incorrect dose administered [Not Recovered/Not Resolved]
  - Arthralgia [Not Recovered/Not Resolved]
  - Pyrexia [Not Recovered/Not Resolved]

NARRATIVE: CASE EVENT DATE: 20210912
